FAERS Safety Report 19167851 (Version 2)
Quarter: 2021Q2

REPORT INFORMATION
  Report Type: Report from Study
  Country: US (occurrence: US)
  Receive Date: 20210422
  Receipt Date: 20210524
  Transmission Date: 20210717
  Serious: Yes (Death, Hospitalization, Other)
  Sender: FDA-Public Use
  Company Number: US-BAYER-2021-128592

PATIENT
  Age: 89 Year
  Sex: Female

DRUGS (2)
  1. ADEMPAS [Suspect]
     Active Substance: RIOCIGUAT
     Indication: PULMONARY ARTERIAL HYPERTENSION
     Dosage: UNK
     Route: 048
     Dates: start: 20170414, end: 20210415
  2. ADEMPAS [Suspect]
     Active Substance: RIOCIGUAT
     Indication: PULMONARY ARTERIAL HYPERTENSION
     Dosage: 2.5 MG, TID
     Route: 048
     Dates: start: 20170706

REACTIONS (10)
  - Cholestasis [Fatal]
  - Fall [None]
  - Acute kidney injury [Fatal]
  - Sepsis [Fatal]
  - Skin wound [Fatal]
  - Nausea [None]
  - Vomiting [None]
  - Gallbladder enlargement [Fatal]
  - Balance disorder [None]
  - Intestinal obstruction [Fatal]
